FAERS Safety Report 5531566-6 (Version None)
Quarter: 2007Q4

REPORT INFORMATION
  Report Type: 
  Country: None (occurrence: None)
  Receive Date: 20071127
  Receipt Date: 20071127
  Transmission Date: 20080405
  Serious: No
  Sender: FDA-Public Use
  Company Number: None

PATIENT

DRUGS (2)
  1. METFORMIN HCL [Suspect]
     Indication: INSULIN RESISTANCE
     Dosage: ONE PILL TWICE DAILY PO
     Route: 048
     Dates: start: 20071113, end: 20071121
  2. GLUCOPHAGE [Suspect]

REACTIONS (5)
  - MALAISE [None]
  - ORAL INTAKE REDUCED [None]
  - PHARMACEUTICAL PRODUCT COMPLAINT [None]
  - SKIN CANDIDA [None]
  - WEIGHT INCREASED [None]
